FAERS Safety Report 18407234 (Version 1)
Quarter: 2020Q4

REPORT INFORMATION
  Report Type: Spontaneous
  Country: CO (occurrence: CO)
  Receive Date: 20201020
  Receipt Date: 20201020
  Transmission Date: 20210114
  Serious: Yes (Other)
  Sender: FDA-Public Use
  Company Number: CO-ASTRAZENECA-2020SF34316

PATIENT
  Sex: Male

DRUGS (1)
  1. NEXIUM [Suspect]
     Active Substance: ESOMEPRAZOLE MAGNESIUM
     Dosage: 20.0MG UNKNOWN
     Route: 048
     Dates: start: 20201009

REACTIONS (1)
  - Suffocation feeling [Unknown]

NARRATIVE: CASE EVENT DATE: 20201009
